FAERS Safety Report 7177108-3 (Version None)
Quarter: 2010Q4

REPORT INFORMATION
  Report Type: 
  Country: None (occurrence: None)
  Receive Date: 20101220
  Receipt Date: 20101209
  Transmission Date: 20110411
  Serious: Yes (Hospitalization)
  Sender: FDA-Public Use
  Company Number: JP-ELI_LILLY_AND_COMPANY-JP201008001657

PATIENT
  Age: 40 Year
  Sex: Female
  Weight: 57 kg

DRUGS (11)
  1. PEMETREXED [Suspect]
     Indication: LUNG ADENOCARCINOMA STAGE IV
     Dosage: 800 MG, OTHER
     Route: 042
     Dates: start: 20091019, end: 20091109
  2. PANVITAN [Concomitant]
     Dosage: 1 G, DAILY (1/D)
     Route: 048
     Dates: start: 20091008, end: 20091217
  3. HYDROXOCOBALAMIN ACETATE [Concomitant]
     Dosage: 1 MG, UNK
     Route: 030
     Dates: start: 20091008, end: 20091008
  4. SEROTONE [Concomitant]
     Route: 042
     Dates: start: 20091019, end: 20091109
  5. DEXART [Concomitant]
     Route: 042
     Dates: start: 20091019, end: 20091109
  6. CODEINE PHOSPHATE [Concomitant]
     Indication: COUGH
     Dates: start: 20091015
  7. LOXONIN [Concomitant]
     Indication: CANCER PAIN
     Dates: start: 20091102
  8. MUCOSTA [Concomitant]
     Indication: PROPHYLAXIS
     Route: 048
     Dates: start: 20091102, end: 20091108
  9. DEPAS [Concomitant]
     Indication: PROPHYLAXIS
     Route: 048
     Dates: start: 20091102
  10. OMEPRAL [Concomitant]
     Indication: PROPHYLAXIS
     Dates: start: 20091106
  11. DECADRON [Concomitant]
     Dates: start: 20091108, end: 20091110

REACTIONS (1)
  - LIVER FUNCTION TEST ABNORMAL [None]
